FAERS Safety Report 4577958-3 (Version None)
Quarter: 2005Q1

REPORT INFORMATION
  Report Type: 
  Country: None (occurrence: None)
  Receive Date: 20050209
  Receipt Date: 20050124
  Transmission Date: 20050727
  Serious: Yes (Hospitalization)
  Sender: FDA-Public Use
  Company Number: ACO_0123_2005

PATIENT
  Age: 65 Year
  Sex: Male

DRUGS (9)
  1. SIRDALUD [Suspect]
     Indication: MUSCLE SPASMS
     Dosage: 4 MG QDAY PO
     Route: 048
  2. SOTALOL HCL [Suspect]
     Indication: ATRIAL FIBRILLATION
     Dosage: 160 MG QDAY PO
     Route: 048
  3. BUPRENORPHINE [Concomitant]
  4. TOREM [Concomitant]
  5. PLAVIX [Concomitant]
  6. ACETAMINOPHEN [Concomitant]
  7. ZESTRIL [Concomitant]
  8. TEMGESIC ^ESSEX PHARMA^ [Concomitant]
  9. ASPIRIN [Concomitant]

REACTIONS (1)
  - HALLUCINATION, AUDITORY [None]
